FAERS Safety Report 20031016 (Version 1)
Quarter: 2021Q4

REPORT INFORMATION
  Report Type: Spontaneous
  Country: US (occurrence: US)
  Receive Date: 20211103
  Receipt Date: 20211103
  Transmission Date: 20220303
  Serious: No
  Sender: FDA-Public Use
  Company Number: US-ALLERGAN-2045861US

PATIENT
  Sex: Female

DRUGS (1)
  1. VRAYLAR [Suspect]
     Active Substance: CARIPRAZINE
     Indication: Schizoaffective disorder
     Dosage: 1.5 MG

REACTIONS (3)
  - Intentional dose omission [Unknown]
  - Insomnia [Unknown]
  - Weight increased [Unknown]
